FAERS Safety Report 4633236-5 (Version None)
Quarter: 2005Q2

REPORT INFORMATION
  Report Type: 
  Country: None (occurrence: None)
  Receive Date: 20050408
  Receipt Date: 20050331
  Transmission Date: 20051028
  Serious: Yes (Other)
  Sender: FDA-Public Use
  Company Number: 2005053262

PATIENT
  Age: 70 Year
  Sex: Female

DRUGS (8)
  1. CARDENALIN (DOXAZOSIN) [Suspect]
     Indication: ILL-DEFINED DISORDER
     Dosage: 5 MG ORAL
     Route: 048
     Dates: end: 20050328
  2. DICLOFENAC SODIUM [Suspect]
     Dosage: 25 MG, ORAL
     Route: 048
     Dates: end: 20050301
  3. CANDESARTAN CILEXTIL (CANDESARTAN CILEXETIL) [Concomitant]
     Indication: ILL-DEFINED DISORDER
     Dates: end: 20050301
  4. ETIZOLAM (ETIZOLAM) [Suspect]
     Indication: ILL-DEFINED DISORDER
     Dates: end: 20050301
  5. AMLODIPINE BESYLATE [Concomitant]
  6. MEFENAMIC ACID [Concomitant]
  7. ASPIRIN [Concomitant]
  8. SINEMET [Concomitant]

REACTIONS (2)
  - BLOOD CREATINE PHOSPHOKINASE INCREASED [None]
  - MYALGIA [None]
